FAERS Safety Report 4443536-X (Version None)
Quarter: 2004Q3

REPORT INFORMATION
  Report Type: 
  Country: None (occurrence: None)
  Receive Date: 20040908
  Receipt Date: 20040901
  Transmission Date: 20050211
  Serious: Yes (Hospitalization)
  Sender: FDA-Public Use
  Company Number: PHBS2004JP11749

PATIENT
  Age: 69 Year
  Sex: Male

DRUGS (4)
  1. DIOVAN [Suspect]
     Dosage: 80 MG, QD
     Route: 048
  2. CARDENALIN [Concomitant]
     Indication: HYPERTENSION
     Dosage: 2 MG, UNK
     Route: 048
  3. TENORMIN [Concomitant]
     Dosage: 50 MG, UNK
     Route: 048
  4. EMABERIN [Concomitant]
     Route: 048

REACTIONS (5)
  - DYSPNOEA [None]
  - EOSINOPHIL COUNT INCREASED [None]
  - EOSINOPHILIC PNEUMONIA [None]
  - OEDEMA [None]
  - OXYGEN SATURATION DECREASED [None]
